FAERS Safety Report 4981708-6 (Version None)
Quarter: 2006Q2

REPORT INFORMATION
  Report Type: 
  Country: None (occurrence: None)
  Receive Date: 20060425
  Receipt Date: 20060420
  Transmission Date: 20061013
  Serious: Yes (Hospitalization)
  Sender: FDA-Public Use
  Company Number: 2006CG00732

PATIENT
  Age: 3 Year
  Sex: Female
  Weight: 11.5 kg

DRUGS (4)
  1. MOPRAL [Suspect]
     Indication: OESOPHAGITIS
     Route: 048
     Dates: start: 20060201, end: 20060401
  2. CELESTENE [Concomitant]
     Indication: EAR INFECTION
  3. BRONCHOKOD [Concomitant]
     Indication: EAR INFECTION
  4. ORELOX [Concomitant]
     Indication: EAR INFECTION

REACTIONS (2)
  - DRUG INEFFECTIVE [None]
  - OESOPHAGEAL ULCER [None]
